FAERS Safety Report 4509838-3 (Version None)
Quarter: 2004Q4

REPORT INFORMATION
  Report Type: 
  Country: None (occurrence: None)
  Receive Date: 20041119
  Receipt Date: 20041028
  Transmission Date: 20050328
  Serious: Yes (Hospitalization, Other)
  Sender: FDA-Public Use
  Company Number: USA041082661

PATIENT
  Age: 80 Year
  Sex: Female

DRUGS (1)
  1. FORTEO [Suspect]
     Indication: OSTEOPOROSIS
     Dosage: 20 UG/1 DAY
     Dates: start: 20040804

REACTIONS (5)
  - CONTUSION [None]
  - HAEMORRHAGE [None]
  - MENTAL STATUS CHANGES [None]
  - PLATELET COUNT DECREASED [None]
  - RECTAL HAEMORRHAGE [None]
